FAERS Safety Report 12484378 (Version 2)
Quarter: 2016Q2

REPORT INFORMATION
  Report Type: Spontaneous
  Country: US (occurrence: US)
  Receive Date: 20160621
  Receipt Date: 20160629
  Transmission Date: 20160815
  Serious: Yes (Hospitalization, Other)
  Sender: FDA-Public Use
  Company Number: US-009507513-1606USA009344

PATIENT
  Age: 49 Year
  Sex: Female
  Weight: 43 kg

DRUGS (16)
  1. POLYETHYLENE GLYCOL [Concomitant]
     Active Substance: POLYETHYLENE GLYCOLS
  2. PEPCID [Concomitant]
     Active Substance: FAMOTIDINE
  3. FOLIC ACID. [Concomitant]
     Active Substance: FOLIC ACID
  4. HYDROMORPHONE [Concomitant]
     Active Substance: HYDROMORPHONE
  5. MEDROXYPROGESTERONE ACETATE. [Concomitant]
     Active Substance: MEDROXYPROGESTERONE ACETATE
  6. BUDESONIDE (+) FORMOTEROL FUMARATE [Concomitant]
     Active Substance: BUDESONIDE\FORMOTEROL FUMARATE
  7. CUBICIN [Suspect]
     Active Substance: DAPTOMYCIN
     Indication: ENDOCARDITIS STAPHYLOCOCCAL
     Dosage: 300 MG, QD (EQUAL TO 7 MG/KG)
     Route: 042
  8. BACLOFEN. [Concomitant]
     Active Substance: BACLOFEN
  9. METHADONE HYDROCHLORIDE. [Concomitant]
     Active Substance: METHADONE HYDROCHLORIDE
  10. FONDAPARINUX SODIUM. [Concomitant]
     Active Substance: FONDAPARINUX SODIUM
  11. THIAMINE. [Concomitant]
     Active Substance: THIAMINE
  12. PREDNISONE. [Concomitant]
     Active Substance: PREDNISONE
  13. VITAMINS (UNSPECIFIED) [Concomitant]
     Active Substance: VITAMINS
  14. GABAPENTIN. [Concomitant]
     Active Substance: GABAPENTIN
  15. METOPROLOL TARTRATE. [Concomitant]
     Active Substance: METOPROLOL TARTRATE
  16. INSULIN DETEMIR [Concomitant]
     Active Substance: INSULIN DETEMIR

REACTIONS (1)
  - Drug-induced liver injury [Recovering/Resolving]
